FAERS Safety Report 5842563-5 (Version None)
Quarter: 2008Q3

REPORT INFORMATION
  Report Type: 
  Country: None (occurrence: None)
  Receive Date: 20080812
  Receipt Date: 20080731
  Transmission Date: 20090109
  Serious: Yes (Disabling)
  Sender: FDA-Public Use
  Company Number: FR-PFIZER INC-2008064556

PATIENT
  Sex: Male
  Weight: 91 kg

DRUGS (4)
  1. VFEND [Suspect]
     Indication: MYCETOMA MYCOTIC
     Route: 048
  2. ATENOLOL [Suspect]
     Indication: HYPERTENSION
     Route: 048
  3. FLUDEX [Concomitant]
  4. LAMISIL [Concomitant]

REACTIONS (2)
  - ERECTILE DYSFUNCTION [None]
  - LIBIDO DECREASED [None]
